APPROVED DRUG PRODUCT: FEXINIDAZOLE
Active Ingredient: FEXINIDAZOLE
Strength: 600MG
Dosage Form/Route: TABLET;ORAL
Application: N214429 | Product #001
Applicant: SANOFI AVENTIS US LLC
Approved: Jul 16, 2021 | RLD: Yes | RS: Yes | Type: RX

EXCLUSIVITY:
Code: NCE | Date: Jul 16, 2026
Code: ODE-359 | Date: Jul 16, 2028